FAERS Safety Report 4297360-1 (Version None)
Quarter: 2004Q1

REPORT INFORMATION
  Report Type: 
  Country: None (occurrence: None)
  Receive Date: 20040212
  Receipt Date: 20030915
  Transmission Date: 20041129
  Serious: Yes (Other)
  Sender: FDA-Public Use
  Company Number: A03200302149

PATIENT

DRUGS (1)
  1. AMBIEN - ZOLPIEDEM TARTRATE [Suspect]

REACTIONS (1)
  - HALLUCINATION, AUDITORY [None]
